FAERS Safety Report 7740118 (Version 3)
Quarter: 2013Q1

REPORT INFORMATION
  Report Type: Spontaneous
  Country: US (occurrence: US)
  Receive Date: 20101227
  Receipt Date: 20130110
  Transmission Date: 20140127
  Serious: Yes (Hospitalization)
  Sender: FDA-Public Use
  Company Number: US-BAYER-2010-006629

PATIENT
  Age: 37 Year
  Sex: Female
  Weight: 68.03 kg

DRUGS (4)
  1. YAZ [Suspect]
     Indication: ACNE
     Dosage: UNK
     Route: 048
     Dates: start: 200810, end: 200812
  2. AZITHROMYCIN [Concomitant]
  3. IMITREX [Concomitant]
     Indication: MIGRAINE
  4. PRILOSEC [Concomitant]

REACTIONS (7)
  - Pulmonary embolism [None]
  - Respiratory tract infection [None]
  - Non-cardiac chest pain [None]
  - Dyspnoea [None]
  - Cough [None]
  - Fatigue [None]
  - Lethargy [None]
